FAERS Safety Report 5530437-9 (Version None)
Quarter: 2007Q4

REPORT INFORMATION
  Report Type: 
  Country: None (occurrence: None)
  Receive Date: 20071127
  Receipt Date: 20071127
  Transmission Date: 20080405
  Serious: Yes (Death)
  Sender: FDA-Public Use
  Company Number: None

PATIENT
  Age: 58 Year
  Sex: Female

DRUGS (7)
  1. AZITHROMYCIN DIHYDRATE [Suspect]
     Dosage: 500MG
  2. CEFTRIAXONE [Suspect]
  3. HYDROCHLOROTHIAZIDE [Concomitant]
  4. NAPROXEN [Concomitant]
  5. LEVOTHYROXINE SODIUM [Concomitant]
  6. RANITIDINE HCL [Concomitant]
  7. PEPT [Concomitant]

REACTIONS (1)
  - TORSADE DE POINTES [None]
